FAERS Safety Report 25050464 (Version 1)
Quarter: 2025Q1

REPORT INFORMATION
  Report Type: Spontaneous
  Country: IT (occurrence: IT)
  Receive Date: 20250307
  Receipt Date: 20250307
  Transmission Date: 20250409
  Serious: Yes (Death, Other)
  Sender: AUROBINDO
  Company Number: IT-ABBVIE-6136118

PATIENT
  Age: 79 Year
  Sex: Male

DRUGS (38)
  1. AZACITIDINE [Suspect]
     Active Substance: AZACITIDINE
     Indication: Product used for unknown indication
     Route: 065
     Dates: start: 20240829, end: 20240904
  2. VENETOCLAX [Suspect]
     Active Substance: VENETOCLAX
     Indication: Product used for unknown indication
     Route: 048
     Dates: start: 20240830, end: 20240830
  3. VENETOCLAX [Suspect]
     Active Substance: VENETOCLAX
     Route: 048
     Dates: start: 20240902, end: 20240902
  4. VENETOCLAX [Suspect]
     Active Substance: VENETOCLAX
     Route: 048
     Dates: start: 20240901, end: 20240901
  5. VENETOCLAX [Suspect]
     Active Substance: VENETOCLAX
     Route: 048
     Dates: start: 20240831, end: 20240831
  6. VENETOCLAX [Suspect]
     Active Substance: VENETOCLAX
     Route: 048
     Dates: start: 20240829, end: 20240829
  7. VENETOCLAX [Suspect]
     Active Substance: VENETOCLAX
     Route: 048
     Dates: start: 20240903, end: 20240907
  8. ONDANSETRON [Concomitant]
     Active Substance: ONDANSETRON
     Indication: Prophylaxis of nausea and vomiting
     Route: 048
     Dates: start: 20240829, end: 20240904
  9. VERAPAMIL [Concomitant]
     Active Substance: VERAPAMIL HYDROCHLORIDE
     Indication: Supraventricular tachycardia
     Route: 048
     Dates: start: 20240822, end: 20240907
  10. POSACONAZOLE [Concomitant]
     Active Substance: POSACONAZOLE
     Indication: Antifungal prophylaxis
     Route: 048
     Dates: start: 20240904, end: 20240916
  11. POSACONAZOLE [Concomitant]
     Active Substance: POSACONAZOLE
     Route: 048
     Dates: start: 20240903, end: 20240903
  12. OMEPRAZOLE [Concomitant]
     Active Substance: OMEPRAZOLE
     Indication: Gastrointestinal disorder prophylaxis
     Route: 048
     Dates: start: 20240820, end: 20240907
  13. OMEPRAZOLE [Concomitant]
     Active Substance: OMEPRAZOLE
     Route: 048
     Dates: start: 20240910, end: 20240915
  14. ALLOPURINOL [Concomitant]
     Active Substance: ALLOPURINOL
     Indication: Hyperuricaemia
     Route: 048
     Dates: start: 20240824, end: 20240909
  15. MAALOX ANTACID [Concomitant]
     Active Substance: ALUMINUM HYDROXIDE\DIMETHICONE\MAGNESIUM HYDROXIDE
     Indication: Gastrointestinal disorder prophylaxis
     Route: 048
     Dates: start: 20240830, end: 20240908
  16. MAALOX ANTACID [Concomitant]
     Active Substance: ALUMINUM HYDROXIDE\DIMETHICONE\MAGNESIUM HYDROXIDE
     Route: 048
     Dates: start: 20240821, end: 20240829
  17. DOXAZOSIN [Concomitant]
     Active Substance: DOXAZOSIN MESYLATE
     Indication: Hypertension
     Route: 048
     Dates: start: 2024, end: 20240830
  18. Clinimix n9g15e [Concomitant]
     Indication: Vitamin supplementation
     Route: 042
     Dates: start: 20240910, end: 20240913
  19. INSULIN GLARGINE [Concomitant]
     Active Substance: INSULIN GLARGINE
     Indication: Diabetes mellitus
     Route: 065
     Dates: start: 20240914, end: 20240915
  20. INSULIN GLARGINE [Concomitant]
     Active Substance: INSULIN GLARGINE
     Route: 058
     Dates: start: 20240821, end: 20240913
  21. KONAKION [Concomitant]
     Active Substance: PHYTONADIONE
     Indication: Vitamin supplementation
     Route: 065
     Dates: start: 20240908, end: 20240916
  22. KONAKION [Concomitant]
     Active Substance: PHYTONADIONE
     Route: 042
     Dates: start: 20240829, end: 20240904
  23. METHYLPREDNISOLONE [Concomitant]
     Active Substance: METHYLPREDNISOLONE
     Indication: Acute promyelocytic leukaemia
     Route: 042
     Dates: start: 20240830, end: 20240831
  24. METHYLPREDNISOLONE [Concomitant]
     Active Substance: METHYLPREDNISOLONE
     Route: 042
     Dates: start: 20240822, end: 20240828
  25. METHYLPREDNISOLONE [Concomitant]
     Active Substance: METHYLPREDNISOLONE
     Route: 042
     Dates: start: 20240829, end: 20240829
  26. Aloperidolo salf [Concomitant]
     Indication: Sedation
     Route: 042
     Dates: start: 20240917, end: 20240920
  27. INSULIN ASPART [Concomitant]
     Active Substance: INSULIN ASPART
     Indication: Diabetes mellitus
     Route: 058
     Dates: start: 20240823, end: 20240915
  28. AMLODIPINE [Concomitant]
     Active Substance: AMLODIPINE BESYLATE
     Indication: Hypertension
     Route: 048
     Dates: start: 20240820, end: 20240907
  29. AMLODIPINE [Concomitant]
     Active Substance: AMLODIPINE BESYLATE
     Route: 048
     Dates: start: 20240913, end: 20240915
  30. MIDAZOLAM [Concomitant]
     Active Substance: MIDAZOLAM
     Indication: Sedation
     Route: 042
     Dates: start: 20240917, end: 20240920
  31. Pursennide [Concomitant]
     Indication: Constipation
     Route: 048
     Dates: start: 20240827, end: 20240907
  32. Pursennide [Concomitant]
     Route: 048
     Dates: start: 20240910, end: 20240916
  33. HALOPERIDOL [Concomitant]
     Active Substance: HALOPERIDOL
     Indication: Agitation
     Route: 048
     Dates: start: 20240826, end: 20240906
  34. HALOPERIDOL [Concomitant]
     Active Substance: HALOPERIDOL
     Route: 048
     Dates: start: 20240909, end: 20240916
  35. POTASSIUM CHLORIDE [Concomitant]
     Active Substance: POTASSIUM CHLORIDE
     Indication: Mineral supplementation
     Route: 048
     Dates: start: 20240912, end: 20240912
  36. POTASSIUM CHLORIDE [Concomitant]
     Active Substance: POTASSIUM CHLORIDE
     Route: 048
     Dates: start: 20240913, end: 20240915
  37. FUROSEMIDE [Concomitant]
     Active Substance: FUROSEMIDE
     Indication: Prophylaxis
     Route: 042
     Dates: start: 20240825, end: 20240904
  38. FUROSEMIDE [Concomitant]
     Active Substance: FUROSEMIDE
     Route: 042
     Dates: start: 20240905, end: 20240911

REACTIONS (2)
  - Sepsis [Fatal]
  - Atrial fibrillation [Recovered/Resolved]

NARRATIVE: CASE EVENT DATE: 20240907
